FAERS Safety Report 14308816 (Version 3)
Quarter: 2018Q1

REPORT INFORMATION
  Report Type: Other
  Country: GB (occurrence: GB)
  Receive Date: 20171220
  Receipt Date: 20180307
  Transmission Date: 20180509
  Serious: Yes (Death, Hospitalization, Other)
  Sender: FDA-Public Use
  Company Number: GB-MHRA-ADR 23834810

PATIENT
  Age: 72 Year
  Sex: Female
  Weight: 59.9 kg

DRUGS (41)
  1. MIDAZOLAM [Concomitant]
     Active Substance: MIDAZOLAM HYDROCHLORIDE
     Indication: SUPPORTIVE CARE
     Dosage: UNK
     Route: 065
     Dates: start: 20170225, end: 20170225
  2. NITROFURANTOIN. [Concomitant]
     Active Substance: NITROFURANTOIN
     Indication: ARTHRALGIA
     Dosage: 100 MG, QD
     Route: 048
     Dates: start: 20170102, end: 20170225
  3. OMEPRAZOLE. [Concomitant]
     Active Substance: OMEPRAZOLE
     Indication: GASTRITIS PROPHYLAXIS
     Dosage: 20 MG, QD
     Route: 065
     Dates: start: 20160803, end: 20170225
  4. PARACETAMOL [Concomitant]
     Active Substance: ACETAMINOPHEN
     Indication: NON-CARDIAC CHEST PAIN
  5. CLOTRIMAZOLE. [Concomitant]
     Active Substance: CLOTRIMAZOLE
     Indication: VULVOVAGINAL CANDIDIASIS
     Dosage: UNK
     Route: 065
  6. GELCLAIR (ENOXOLONE\HYALURONATE SODIUM\POVIDONE) [Suspect]
     Active Substance: ENOXOLONE\HYALURONATE SODIUM\POVIDONE
     Indication: ORAL CANDIDIASIS
     Dosage: 4 UNK, QD
     Route: 048
     Dates: start: 20160907, end: 20170225
  7. DEXAMETHASONE. [Suspect]
     Active Substance: DEXAMETHASONE
     Indication: PLASMA CELL MYELOMA
     Dosage: 20 MG
     Route: 048
     Dates: start: 20170112, end: 20170112
  8. ACICLOVIR [Concomitant]
     Active Substance: ACYCLOVIR
     Indication: PROPHYLAXIS
     Dosage: UNK
     Route: 048
  9. ACICLOVIR [Concomitant]
     Active Substance: ACYCLOVIR
     Indication: INFECTION PROPHYLAXIS
     Dosage: 400 MG, BID
     Route: 048
     Dates: start: 20160803, end: 20170225
  10. FLUCONAZOLE. [Concomitant]
     Active Substance: FLUCONAZOLE
     Indication: INFECTION PROPHYLAXIS
     Dosage: UNK
  11. VITAMIN B-COMPLEX, PLAIN [Concomitant]
     Indication: NUTRITIONAL SUPPLEMENTATION
     Dosage: UNK
     Route: 065
  12. DEXAMETHASONE. [Suspect]
     Active Substance: DEXAMETHASONE
     Dosage: 40 MG
     Route: 048
     Dates: start: 20160803, end: 20170111
  13. METOCLOPRAMIDE. [Concomitant]
     Active Substance: METOCLOPRAMIDE
     Indication: GASTROOESOPHAGEAL REFLUX DISEASE
     Dosage: 10 MG, QD
     Route: 048
     Dates: start: 20160803, end: 20170225
  14. ANUSOL NOS [Concomitant]
     Active Substance: BALSAM PERU\BENZYL BENZOATE\BISMUTH HYDROXIDE\BISMUTH SUBGALLATE\HYDROCORTISONE ACETATE\ZINC OXIDE
     Indication: HAEMORRHOIDS
     Dosage: UNK
     Route: 065
  15. ENOXAPARIN [Concomitant]
     Active Substance: ENOXAPARIN
     Indication: THROMBOSIS PROPHYLAXIS
     Dosage: 20 MG, QD
     Route: 065
     Dates: start: 20170115, end: 20170125
  16. ERYTHROPOIETIN [Concomitant]
     Active Substance: ERYTHROPOIETIN
     Indication: ANAEMIA
     Dosage: 3000 IU
     Route: 058
     Dates: start: 20160928, end: 20170225
  17. OXYCODONE [Concomitant]
     Active Substance: OXYCODONE
     Indication: ARTHRALGIA
     Dosage: 10 MG, BID
     Route: 048
     Dates: start: 20160706, end: 20170225
  18. OXYCONTIN [Concomitant]
     Active Substance: OXYCODONE HYDROCHLORIDE
     Dosage: UNK
  19. MORPHINE [Concomitant]
     Active Substance: MORPHINE
     Indication: SUPPORTIVE CARE
     Dosage: UNK
     Route: 065
  20. ONDANSETRON [Concomitant]
     Active Substance: ONDANSETRON
     Dosage: 4 MG, QD
     Route: 048
     Dates: start: 20170115, end: 20170123
  21. OXYCONTIN [Concomitant]
     Active Substance: OXYCODONE HYDROCHLORIDE
     Indication: CHEST PAIN
     Dosage: UNK
  22. FRESUBIN ENERGY (CAFFEINE\CARBOHYDRATES\CHOLINE\FATTY ACIDS\MINERALS\PROTEIN\VITAMINS) [Suspect]
     Active Substance: CAFFEINE\CARBOHYDRATES\CHOLINE\FATTY ACIDS\MINERALS\PROTEIN\VITAMINS
     Indication: SUPPLEMENTATION THERAPY
     Dosage: UNK, QD
     Route: 048
     Dates: start: 20170112, end: 20170125
  23. DEXAMETHASONE. [Suspect]
     Active Substance: DEXAMETHASONE
     Dosage: 10 MG
     Route: 048
     Dates: start: 20170113, end: 20170114
  24. ALLOPURINOL. [Concomitant]
     Active Substance: ALLOPURINOL
     Indication: PROPHYLAXIS
     Dosage: 300 MG, QD
     Route: 048
     Dates: start: 20160803, end: 20170112
  25. FLUCONAZOLE. [Concomitant]
     Active Substance: FLUCONAZOLE
     Indication: INFECTION
     Dosage: 100 MG, QD
     Route: 048
     Dates: start: 20170112, end: 20170125
  26. ONDANSETRON [Concomitant]
     Active Substance: ONDANSETRON
     Indication: PROPHYLAXIS OF NAUSEA AND VOMITING
     Dosage: UNK
     Route: 048
  27. OXYCODONE [Concomitant]
     Active Substance: OXYCODONE
     Indication: NON-CARDIAC CHEST PAIN
  28. OXYCODONE HYDROCHLORIDE. [Concomitant]
     Active Substance: OXYCODONE HYDROCHLORIDE
     Indication: CHEST PAIN
     Dosage: 5 MG
     Route: 065
     Dates: end: 20170225
  29. OXYCONTIN [Concomitant]
     Active Substance: OXYCODONE HYDROCHLORIDE
     Indication: ARTHRALGIA
     Dosage: 30 MG, BID
     Route: 065
     Dates: start: 20160713, end: 20170225
  30. RANITIDINE. [Concomitant]
     Active Substance: RANITIDINE
     Indication: GASTRITIS PROPHYLAXIS
     Dosage: 150 MG, QD
     Route: 048
     Dates: start: 20170115, end: 20170126
  31. NITROFURANTOIN. [Concomitant]
     Active Substance: NITROFURANTOIN
     Indication: URINARY TRACT INFECTION
     Dosage: 400 UNK
  32. HEPARINOID [Concomitant]
     Active Substance: CHONDROITIN SULFATE (BOVINE)
     Indication: THROMBOPHLEBITIS
     Route: 065
  33. MEROPENEM. [Concomitant]
     Active Substance: MEROPENEM
     Indication: BACTERAEMIA
     Route: 065
  34. REVLIMID [Suspect]
     Active Substance: LENALIDOMIDE
     Indication: PLASMA CELL MYELOMA
     Dosage: 10 MILLIGRAM
     Route: 048
     Dates: start: 20160803, end: 20170110
  35. HALOPERIDOL. [Concomitant]
     Active Substance: HALOPERIDOL
     Indication: SUPPORTIVE CARE
     Dosage: UNK
     Route: 065
  36. LAXIDO [Concomitant]
     Active Substance: POLYETHYLENE GLYCOL 3350\POTASSIUM CHLORIDE\SODIUM BICARBONATE\SODIUM CHLORIDE
     Indication: CONSTIPATION
     Dosage: 1 DF, SINGLE
     Route: 048
     Dates: start: 20170112, end: 20170119
  37. METANIUM [Concomitant]
     Indication: PRODUCT USED FOR UNKNOWN INDICATION
     Dosage: UNK, SINGLE
     Route: 061
     Dates: start: 20170125, end: 20170225
  38. MOVICOL [Concomitant]
     Active Substance: POLYETHYLENE GLYCOL 3350\POTASSIUM CHLORIDE\SODIUM BICARBONATE\SODIUM CHLORIDE
     Indication: CONSTIPATION
     Dosage: 2 UNK, QD
     Route: 048
     Dates: start: 20160921, end: 20170225
  39. OXYCODONE HYDROCHLORIDE. [Concomitant]
     Active Substance: OXYCODONE HYDROCHLORIDE
     Indication: NON-CARDIAC CHEST PAIN
  40. PARACETAMOL [Concomitant]
     Active Substance: ACETAMINOPHEN
     Indication: ARTHRALGIA
     Dosage: 4000 MG, QD
     Route: 048
     Dates: start: 20160622, end: 20170225
  41. PREDNISOLONE. [Concomitant]
     Active Substance: PREDNISOLONE
     Indication: SEPSIS
     Dosage: UNK
     Route: 065

REACTIONS (7)
  - Vulvovaginal candidiasis [Fatal]
  - Acute kidney injury [Fatal]
  - Acute coronary syndrome [Fatal]
  - Pneumonia [Fatal]
  - Chronic kidney disease [Fatal]
  - Lymphadenopathy [Fatal]
  - Thrombophlebitis [Fatal]

NARRATIVE: CASE EVENT DATE: 20170111
